FAERS Safety Report 8396503-8 (Version None)
Quarter: 2012Q2

REPORT INFORMATION
  Report Type: 
  Country: None (occurrence: None)
  Receive Date: 20120530
  Receipt Date: 20120522
  Transmission Date: 20120825
  Serious: Yes (Hospitalization)
  Sender: FDA-Public Use
  Company Number: US-US-EMD SERONO, INC.-232395K09USA

PATIENT
  Sex: Female
  Weight: 90 kg

DRUGS (6)
  1. LYRICA [Concomitant]
     Indication: PARAESTHESIA
  2. CRANBERRY SUPPLEMENT [Concomitant]
     Indication: URINARY TRACT INFECTION
  3. LYRICA [Concomitant]
     Indication: HYPOAESTHESIA
     Dates: start: 20081101
  4. MULTI-VITAMINS [Concomitant]
     Indication: PRODUCT USED FOR UNKNOWN INDICATION
  5. REBIF [Suspect]
     Indication: MULTIPLE SCLEROSIS
     Route: 058
     Dates: start: 20081104, end: 20090918
  6. NAPROXEN (ALEVE) [Concomitant]
     Indication: PREMEDICATION

REACTIONS (6)
  - BLOOD ALBUMIN DECREASED [None]
  - INJECTION SITE REACTION [None]
  - MULTIPLE MYELOMA [None]
  - BLOOD SODIUM DECREASED [None]
  - LOSS OF CONSCIOUSNESS [None]
  - URINE ODOUR ABNORMAL [None]
